FAERS Safety Report 7837597-5 (Version None)
Quarter: 2011Q4

REPORT INFORMATION
  Report Type: 
  Country: None (occurrence: None)
  Receive Date: 20111024
  Receipt Date: 20110418
  Transmission Date: 20120403
  Serious: No
  Sender: FDA-Public Use
  Company Number: US-ABBOTT-11P-163-0720723-00

PATIENT
  Sex: Female
  Weight: 122.58 kg

DRUGS (4)
  1. PROZAC [Concomitant]
     Indication: DEPRESSION
  2. LUPRON DEPOT [Suspect]
     Indication: ENDOMETRIOSIS
     Dates: start: 20101201
  3. ATIVAN [Concomitant]
     Indication: ANXIETY
     Dosage: PRN
  4. TOPROL-XL [Concomitant]
     Indication: HYPERTENSION

REACTIONS (2)
  - HEADACHE [None]
  - PAIN [None]
